FAERS Safety Report 5176458-X (Version None)
Quarter: 2006Q4

REPORT INFORMATION
  Report Type: 
  Country: None (occurrence: None)
  Receive Date: 20061207
  Receipt Date: 20061121
  Transmission Date: 20070319
  Serious: Yes (Death, Life-Threatening, Hospitalization, Disabling)
  Sender: FDA-Public Use
  Company Number: 2005BI021694

PATIENT
  Age: 63 Year
  Sex: Female
  Weight: 89 kg

DRUGS (12)
  1. ZEVALIN [Suspect]
     Indication: NON-HODGKIN'S LYMPHOMA
     Dosage: 1209 MBQ; 1X; IV, SEE IMAGE
     Route: 042
     Dates: start: 20031120, end: 20031120
  2. ZEVALIN [Suspect]
     Indication: NON-HODGKIN'S LYMPHOMA
     Dosage: 1209 MBQ; 1X; IV, SEE IMAGE
     Route: 042
     Dates: start: 20031127, end: 20031127
  3. RITUXIMAB [Concomitant]
  4. LEVOTHYROXINE SODIUM [Concomitant]
  5. INSULIN [Concomitant]
  6. ACETAMINOPHEN [Concomitant]
  7. METFORMIN HCL [Concomitant]
  8. CYCLOPHOSPHAMIDE W/VINCRISTINE/PREDNISONE [Concomitant]
  9. DEXCHLORPHENIRAMINE [Concomitant]
  10. ONDANSETRON [Concomitant]
  11. METRONIDAZOLE [Concomitant]
  12. PIVAMPICILLIN [Concomitant]

REACTIONS (6)
  - ACUTE MYELOID LEUKAEMIA [None]
  - BONE MARROW FAILURE [None]
  - DIVERTICULUM INTESTINAL [None]
  - HAEMATURIA [None]
  - HYPERSENSITIVITY [None]
  - MYELODYSPLASTIC SYNDROME [None]
